FAERS Safety Report 5526716-1 (Version None)
Quarter: 2007Q4

REPORT INFORMATION
  Report Type: 
  Country: None (occurrence: None)
  Receive Date: 20071127
  Receipt Date: 20071120
  Transmission Date: 20080405
  Serious: Yes (Other)
  Sender: FDA-Public Use
  Company Number: BE-ASTRAZENECA-2007AC02262

PATIENT
  Age: 5 Year
  Sex: Male
  Weight: 17 kg

DRUGS (2)
  1. EMLA [Suspect]
     Indication: MOLLUSCUM CONTAGIOSUM
     Dosage: A FULL TUBE
     Route: 061
     Dates: start: 20070701
  2. OMEPRAZOLE [Concomitant]
     Indication: GASTROOESOPHAGEAL REFLUX DISEASE
     Route: 048
     Dates: start: 20040101

REACTIONS (1)
  - DERMATITIS ALLERGIC [None]
